FAERS Safety Report 8349046-1 (Version None)
Quarter: 2012Q2

REPORT INFORMATION
  Report Type: 
  Country: None (occurrence: None)
  Receive Date: 20120508
  Receipt Date: 20120425
  Transmission Date: 20120825
  Serious: Yes (Hospitalization)
  Sender: FDA-Public Use
  Company Number: 2012MA005499

PATIENT
  Age: 65 Year
  Sex: Female

DRUGS (12)
  1. VENTOLIN [Concomitant]
  2. BETA BLOCKERS [Concomitant]
  3. AMLODIPINE [Suspect]
     Indication: HYPERTENSION
     Dosage: 5 MG;QD;PO
     Route: 048
  4. GLICLAZIDE [Concomitant]
  5. ACETYLSALICYLIC ACID SRT [Concomitant]
  6. CALOGEN [Concomitant]
  7. GAVISCON [Concomitant]
  8. CALCIUM AND COLECALCIFEROL [Concomitant]
  9. ATORVASTATIN CALCIUM [Concomitant]
  10. RAMIPRIL [Suspect]
     Indication: HYPERTENSION
     Dosage: 10 MG;QD;PO
     Route: 048
  11. PRILOSEC [Concomitant]
  12. ENSURE PLUS MILKSHAKE [Concomitant]

REACTIONS (3)
  - JOINT SWELLING [None]
  - FALL [None]
  - HYPOTENSION [None]
